FAERS Safety Report 9937624 (Version 1)
Quarter: 2014Q1

REPORT INFORMATION
  Report Type: Spontaneous
  Country: US (occurrence: US)
  Receive Date: 20140303
  Receipt Date: 20140303
  Transmission Date: 20141002
  Serious: No
  Sender: FDA-Public Use
  Company Number: US-009507513-1402USA003728

PATIENT
  Age: 22 Year
  Sex: Female

DRUGS (3)
  1. HEXADROL TABLETS [Suspect]
     Indication: ADRENOGENITAL SYNDROME
     Route: 048
  2. FLUDROCORTISONE [Suspect]
     Indication: ADRENOGENITAL SYNDROME
  3. HYDROCORTONE [Suspect]

REACTIONS (1)
  - Exposure during pregnancy [Recovered/Resolved]
